FAERS Safety Report 16707962 (Version 2)
Quarter: 2019Q3

REPORT INFORMATION
  Report Type: Spontaneous
  Country: JP (occurrence: JP)
  Receive Date: 20190815
  Receipt Date: 20190927
  Transmission Date: 20191004
  Serious: Yes (Hospitalization)
  Sender: FDA-Public Use
  Company Number: JP-ELI_LILLY_AND_COMPANY-JP201907008929

PATIENT
  Sex: Female
  Weight: 52 kg

DRUGS (8)
  1. NAIXAN [NAPROXEN SODIUM] [Concomitant]
     Indication: TUMOUR ASSOCIATED FEVER
     Dosage: 1 DOSAGE FORM, TID
     Route: 048
     Dates: start: 20190714
  2. TAPENTA [Concomitant]
     Active Substance: TAPENTADOL HYDROCHLORIDE
     Indication: CANCER PAIN
     Dosage: 50 MG, BID
     Dates: start: 20190710, end: 20190715
  3. FASLODEX [Concomitant]
     Active Substance: FULVESTRANT
     Indication: BREAST CANCER STAGE IV
     Dosage: 500 MG, CYCLICAL
     Dates: start: 20190410
  4. TAPENTA [Concomitant]
     Active Substance: TAPENTADOL HYDROCHLORIDE
     Dosage: 200 MG
     Dates: start: 20190711, end: 20190715
  5. VERZENIO [Suspect]
     Active Substance: ABEMACICLIB
     Indication: BREAST CANCER STAGE IV
     Dosage: 150 MG, BID
     Route: 048
     Dates: start: 20190703, end: 20190715
  6. TRAMCET [Concomitant]
     Active Substance: ACETAMINOPHEN\TRAMADOL
     Indication: CANCER PAIN
     Dosage: 1 DOSAGE FORM, QID
     Route: 048
     Dates: start: 20181226, end: 20190709
  7. ZOLEDRON [Concomitant]
     Active Substance: ZOLEDRONIC ACID
     Indication: METASTASES TO BONE
     Dosage: 4 MG
     Route: 041
     Dates: start: 20190109, end: 20190703
  8. CANDESARTAN. [Concomitant]
     Active Substance: CANDESARTAN
     Indication: HYPERTENSION
     Dosage: 8 MG, EACH MORNING
     Route: 048
     Dates: start: 20190103, end: 20190713

REACTIONS (7)
  - Circulatory collapse [Recovered/Resolved]
  - Wound infection [Not Recovered/Not Resolved]
  - Diarrhoea [Recovered/Resolved]
  - Vomiting [Recovered/Resolved]
  - Acute kidney injury [Recovered/Resolved]
  - Urinary tract infection [Recovered/Resolved]
  - Dehydration [Recovering/Resolving]

NARRATIVE: CASE EVENT DATE: 2019
